FAERS Safety Report 17263775 (Version 3)
Quarter: 2021Q3

REPORT INFORMATION
  Report Type: Report from Study
  Country: FR (occurrence: FR)
  Receive Date: 20200113
  Receipt Date: 20210722
  Transmission Date: 20211014
  Serious: Yes (Life-Threatening, Hospitalization)
  Sender: FDA-Public Use
  Company Number: FR-MYLANLABS-2020M1004299

PATIENT
  Age: 61 Year
  Sex: Male
  Weight: 65 kg

DRUGS (36)
  1. APREPITANT. [Concomitant]
     Active Substance: APREPITANT
     Dosage: UNK
     Dates: start: 20190911, end: 20190913
  2. METHYLPREDNISOLONE. [Concomitant]
     Active Substance: METHYLPREDNISOLONE
     Indication: CHEMOTHERAPY
     Dosage: UNK
     Dates: start: 20190911, end: 20190911
  3. METOCLOPRAMIDE. [Concomitant]
     Active Substance: METOCLOPRAMIDE
     Dosage: UNK
     Dates: start: 20191002, end: 20191007
  4. LOPERAMIDE [Concomitant]
     Active Substance: LOPERAMIDE
     Indication: PROPHYLAXIS
     Dosage: UNK
     Dates: start: 20190731
  5. PACLITAXEL. [Suspect]
     Active Substance: PACLITAXEL
     Indication: NON-SMALL CELL LUNG CANCER
     Dosage: 752 MG, Q3W
     Route: 042
     Dates: start: 20190731
  6. RANITIDINE. [Concomitant]
     Active Substance: RANITIDINE
     Indication: PREMEDICATION
     Dosage: UNK
     Dates: start: 20190731, end: 20191002
  7. LIDOCAINE AND PRILOCAINE [Concomitant]
     Active Substance: LIDOCAINE\PRILOCAINE
     Dosage: UNK
     Dates: start: 20190731
  8. G?CSF [Concomitant]
     Active Substance: GRANULOCYTE COLONY-STIMULATING FACTOR NOS
     Dosage: UNK
     Dates: start: 20190914, end: 20190918
  9. G?CSF [Concomitant]
     Active Substance: GRANULOCYTE COLONY-STIMULATING FACTOR NOS
     Dosage: UNK
     Dates: start: 20191005, end: 20191009
  10. METOCLOPRAMIDE. [Concomitant]
     Active Substance: METOCLOPRAMIDE
     Indication: PREMEDICATION
     Dosage: UNK
     Dates: start: 20190911, end: 20190916
  11. CANAKINUMAB. [Suspect]
     Active Substance: CANAKINUMAB
     Indication: NON-SMALL CELL LUNG CANCER METASTATIC
     Dosage: UNK
     Route: 058
     Dates: start: 20190731
  12. RANITIDINE. [Concomitant]
     Active Substance: RANITIDINE
     Dosage: UNK
     Dates: start: 20191002, end: 20191002
  13. APREPITANT. [Concomitant]
     Active Substance: APREPITANT
     Indication: PREMEDICATION
     Dosage: UNK
     Dates: start: 20190731, end: 20191004
  14. G?CSF [Concomitant]
     Active Substance: GRANULOCYTE COLONY-STIMULATING FACTOR NOS
     Indication: PROPHYLAXIS
     Dosage: UNK
     Dates: start: 20190804, end: 20191009
  15. ZOPICLONE [Concomitant]
     Active Substance: ZOPICLONE
     Indication: INSOMNIA
     Dosage: UNK
     Dates: start: 20190821, end: 20190921
  16. LEVOTHYROX [Concomitant]
     Active Substance: LEVOTHYROXINE
     Indication: HYPOTHYROIDISM
     Dosage: UNK
     Dates: start: 20190708
  17. DEXCHLORPHENIRAMINE [Concomitant]
     Active Substance: DEXCHLORPHENIRAMINE
     Indication: PREMEDICATION
     Dosage: UNK
     Dates: start: 20190731, end: 20191002
  18. CARBOPLATIN. [Suspect]
     Active Substance: CARBOPLATIN
     Indication: NON-SMALL CELL LUNG CANCER
     Dosage: 200 MG/M2, Q3W
     Route: 042
     Dates: start: 20190731, end: 20191002
  19. GLYCEROL/VASELINE/PARAFFINE EG [Concomitant]
     Indication: PROPHYLAXIS
     Dosage: UNK
     Dates: start: 20190731
  20. ONDANSETRON [Concomitant]
     Active Substance: ONDANSETRON
     Dosage: UNK
     Dates: start: 20190731, end: 20191002
  21. DEXCHLORPHENIRAMINE [Concomitant]
     Active Substance: DEXCHLORPHENIRAMINE
     Dosage: UNK
     Dates: start: 20191002, end: 20191002
  22. METOCLOPRAMIDE. [Concomitant]
     Active Substance: METOCLOPRAMIDE
     Indication: PROPHYLAXIS OF NAUSEA AND VOMITING
     Dosage: UNK
     Dates: start: 20190731
  23. PEMBROLIZUMAB. [Suspect]
     Active Substance: PEMBROLIZUMAB
     Indication: NON-SMALL CELL LUNG CANCER
     Dosage: 200 MG, Q3W
     Route: 042
     Dates: start: 20190731
  24. PARACETAMOL [Concomitant]
     Active Substance: ACETAMINOPHEN
     Indication: PAIN PROPHYLAXIS
     Dosage: UNK
     Dates: start: 20190717
  25. LANSOPRAZOLE. [Concomitant]
     Active Substance: LANSOPRAZOLE
     Indication: ABDOMINAL PAIN UPPER
     Dosage: UNK
     Dates: start: 20190814, end: 20190914
  26. SODIUM BICARBONATE. [Concomitant]
     Active Substance: SODIUM BICARBONATE
     Indication: PROPHYLAXIS
     Dosage: UNK
     Dates: start: 20190731
  27. METHYLPREDNISOLONE. [Concomitant]
     Active Substance: METHYLPREDNISOLONE
     Dosage: UNK
     Dates: start: 20191002, end: 20191002
  28. ONDANSETRON [Concomitant]
     Active Substance: ONDANSETRON
     Dosage: UNK
     Dates: start: 20191002, end: 20191002
  29. RANITIDINE. [Concomitant]
     Active Substance: RANITIDINE
     Dosage: UNK
     Dates: start: 20190911, end: 20190911
  30. APREPITANT. [Concomitant]
     Active Substance: APREPITANT
     Dosage: UNK
     Dates: start: 20191002, end: 20191004
  31. DEXCHLORPHENIRAMINE [Concomitant]
     Active Substance: DEXCHLORPHENIRAMINE
     Dosage: UNK
     Dates: start: 20190911, end: 20190911
  32. METHYLPREDNISOLONE. [Concomitant]
     Active Substance: METHYLPREDNISOLONE
     Dosage: UNK
     Dates: start: 20190731, end: 20191002
  33. METOCLOPRAMIDE. [Concomitant]
     Active Substance: METOCLOPRAMIDE
     Dosage: UNK
     Dates: start: 20190801, end: 20191007
  34. LIDOCAINE AND PRILOCAINE [Concomitant]
     Active Substance: LIDOCAINE\PRILOCAINE
     Indication: PAIN PROPHYLAXIS
     Dosage: UNK
     Dates: start: 20191002, end: 20191004
  35. LIDOCAINE AND PRILOCAINE [Concomitant]
     Active Substance: LIDOCAINE\PRILOCAINE
     Indication: CHEMOTHERAPY SIDE EFFECT PROPHYLAXIS
     Dosage: UNK
     Dates: start: 20190911, end: 20190911
  36. ONDANSETRON [Concomitant]
     Active Substance: ONDANSETRON
     Indication: PREMEDICATION
     Dosage: UNK
     Dates: start: 20190911, end: 20190911

REACTIONS (1)
  - Anaphylactic shock [Recovered/Resolved]

NARRATIVE: CASE EVENT DATE: 20191002
